FAERS Safety Report 23288466 (Version 3)
Quarter: 2024Q1

REPORT INFORMATION
  Report Type: Spontaneous
  Country: JP (occurrence: JP)
  Receive Date: 20231212
  Receipt Date: 20240223
  Transmission Date: 20240410
  Serious: Yes (Hospitalization)
  Sender: FDA-Public Use
  Company Number: JP-CHUGAI-2023042389AA

PATIENT
  Age: 75 Year
  Sex: Male

DRUGS (1)
  1. VABYSMO [Suspect]
     Active Substance: FARICIMAB\FARICIMAB-SVOA
     Indication: Neovascular age-related macular degeneration
     Dosage: 6 MILLIGRAM, ONCE/4WEEKS LEFT EYE
     Route: 050
     Dates: end: 20231020

REACTIONS (7)
  - Retinal vascular occlusion [Recovering/Resolving]
  - Eye inflammation [Recovered/Resolved]
  - Iritis [Recovering/Resolving]
  - Retinitis [Recovering/Resolving]
  - Vitritis [Recovering/Resolving]
  - Uveitis [Recovering/Resolving]
  - Retinal vasculitis [Recovering/Resolving]

NARRATIVE: CASE EVENT DATE: 20230101
